FAERS Safety Report 4832623-X (Version None)
Quarter: 2005Q4

REPORT INFORMATION
  Report Type: 
  Country: None (occurrence: None)
  Receive Date: 20051121
  Receipt Date: 20051108
  Transmission Date: 20060501
  Serious: Yes (Hospitalization, Disabling, Other)
  Sender: FDA-Public Use
  Company Number: US-JNJFOC-20050802405

PATIENT
  Sex: Female

DRUGS (8)
  1. REMICADE [Suspect]
     Route: 042
  2. REMICADE [Suspect]
     Indication: RHEUMATOID ARTHRITIS
     Route: 042
  3. METHOTREXATE [Concomitant]
  4. FOLIC ACID [Concomitant]
  5. ALTACE [Concomitant]
  6. PRILOSEC [Concomitant]
  7. DICLOFENAC [Concomitant]
  8. LESCOL XL [Concomitant]

REACTIONS (5)
  - ALOPECIA [None]
  - HYPERTENSION [None]
  - MYELITIS TRANSVERSE [None]
  - PAIN [None]
  - PARAPARESIS [None]
